FAERS Safety Report 5266399-1 (Version None)
Quarter: 2007Q1

REPORT INFORMATION
  Report Type: 
  Country: None (occurrence: None)
  Receive Date: 20070315
  Receipt Date: 20070201
  Transmission Date: 20070707
  Serious: No
  Sender: FDA-Public Use
  Company Number: US-GLAXOSMITHKLINE-A0633248A

PATIENT
  Age: 55 Year
  Sex: Female
  Weight: 89.1 kg

DRUGS (2)
  1. FLOVENT [Suspect]
     Indication: ASTHMA
     Dosage: 110MCG TWICE PER DAY
     Route: 055
     Dates: start: 20061227, end: 20061230
  2. ADVAIR DISKUS 100/50 [Concomitant]
     Route: 055
     Dates: start: 20010816

REACTIONS (5)
  - CANDIDIASIS [None]
  - DYSPHAGIA [None]
  - EMOTIONAL DISTRESS [None]
  - PANIC REACTION [None]
  - PHARYNGOLARYNGEAL PAIN [None]
